FAERS Safety Report 21301622 (Version 1)
Quarter: 2022Q3

REPORT INFORMATION
  Report Type: Spontaneous
  Country: US (occurrence: US)
  Receive Date: 20220907
  Receipt Date: 20220907
  Transmission Date: 20221027
  Serious: No
  Sender: FDA-Public Use
  Company Number: US-LUPIN PHARMACEUTICALS INC.-2022-10857

PATIENT
  Age: 12 Year
  Sex: Male
  Weight: 33 kg

DRUGS (15)
  1. DULOXETINE [Suspect]
     Active Substance: DULOXETINE
     Indication: Allodynia
     Dosage: UNK
     Route: 065
  2. GABAPENTIN [Suspect]
     Active Substance: GABAPENTIN
     Indication: Allodynia
     Dosage: 300 MG, TID
     Route: 065
  3. CLONIDINE [Suspect]
     Active Substance: CLONIDINE
     Indication: Allodynia
     Dosage: 0.1 MG (AT NIGHT)
     Route: 048
  4. PREGABALIN [Suspect]
     Active Substance: PREGABALIN
     Indication: Allodynia
     Dosage: UNK
     Route: 065
  5. KETAMINE [Suspect]
     Active Substance: KETAMINE
     Indication: Allodynia
     Dosage: 20 MG (INTRAOPERATIVE BOLUS DOSE: 0.6MG/KG)
     Route: 065
  6. KETAMINE [Suspect]
     Active Substance: KETAMINE
     Dosage: 0.25 MICROGRAM/KILOGRAM ( 0.25 MCG/ KG/MIN-INTRAOPERATIVE MAINTENANCE DOSE)
     Route: 065
  7. KETAMINE [Suspect]
     Active Substance: KETAMINE
     Dosage: 5 MG (POSTOPERATIVE)-5 MG/HR
     Route: 065
  8. KETAMINE [Suspect]
     Active Substance: KETAMINE
     Dosage: 0.24 MILLIGRAM/KILOGRAM ( 0.24 MG/KG/HR)
     Route: 065
  9. HYDROMORPHONE [Concomitant]
     Active Substance: HYDROMORPHONE
     Indication: Allodynia
     Dosage: 0.3 MG, PRN (0.3 MG Q4 H AS NEEDED)
     Route: 042
  10. HYDROMORPHONE [Concomitant]
     Active Substance: HYDROMORPHONE
     Dosage: 0.1 MG (DEMAND DOSE)
     Route: 065
  11. KETOROLAC [Concomitant]
     Active Substance: KETOROLAC TROMETHAMINE
     Indication: Allodynia
     Dosage: 15 MG (15 MG Q6 H)
     Route: 065
  12. ACETAMINOPHEN [Concomitant]
     Active Substance: ACETAMINOPHEN
     Indication: Allodynia
     Dosage: 650 MG (650 MG Q4 H)
     Route: 065
  13. ACETAMINOPHEN [Concomitant]
     Active Substance: ACETAMINOPHEN
     Dosage: 600 MG
     Route: 065
  14. FENTANYL [Concomitant]
     Active Substance: FENTANYL
     Indication: Allodynia
     Dosage: 50 MICROGRAM (ONE DOSE FOR INDUCTION AND ONE DOSE PRIOR TO INCISION WAS ADMINISTERED)
     Route: 042
  15. DIAZEPAM [Concomitant]
     Active Substance: DIAZEPAM
     Indication: Muscle spasms
     Dosage: UNK (RECEIVED TWO DOSES)
     Route: 048

REACTIONS (3)
  - Vomiting [Recovered/Resolved]
  - Off label use [Unknown]
  - Drug ineffective for unapproved indication [Unknown]
